FAERS Safety Report 11190977 (Version 1)
Quarter: 2015Q2

REPORT INFORMATION
  Report Type: Spontaneous
  Country: US (occurrence: US)
  Receive Date: 20150615
  Receipt Date: 20150615
  Transmission Date: 20150821
  Serious: Yes (Hospitalization)
  Sender: FDA-Public Use
  Company Number: US-UNITED THERAPEUTICS-UNT-2015-006912

PATIENT
  Age: 55 Year
  Sex: Female
  Weight: 103.4 kg

DRUGS (1)
  1. TYVASO [Suspect]
     Active Substance: TREPROSTINIL
     Indication: PULMONARY HYPERTENSION
     Dosage: 18-72 ?G, QID
     Dates: start: 20130730

REACTIONS (4)
  - Fluid retention [Unknown]
  - Gout [Unknown]
  - Cardiac failure congestive [Unknown]
  - Pain [Unknown]

NARRATIVE: CASE EVENT DATE: 20150526
